FAERS Safety Report 23908583 (Version 1)
Quarter: 2024Q2

REPORT INFORMATION
  Report Type: Other
  Country: DE (occurrence: DE)
  Receive Date: 20240528
  Receipt Date: 20240528
  Transmission Date: 20240716
  Serious: Yes (Hospitalization, Other)
  Sender: FDA-Public Use
  Company Number: DE-B.Braun Medical Inc.-2157463

PATIENT
  Age: 80 Year
  Sex: Male

DRUGS (1)
  1. CEFAZOLIN\DEXTROSE [Suspect]
     Active Substance: CEFAZOLIN\DEXTROSE
     Indication: Staphylococcal bacteraemia
     Route: 042

REACTIONS (1)
  - Drug ineffective [Unknown]
